FAERS Safety Report 5735445-0 (Version None)
Quarter: 2008Q2

REPORT INFORMATION
  Report Type: 
  Country: None (occurrence: None)
  Receive Date: 20080508
  Receipt Date: 20080508
  Transmission Date: 20081010
  Serious: Yes (Life-Threatening)
  Sender: FDA-Public Use
  Company Number: None

PATIENT
  Age: 72 Year
  Sex: Male
  Weight: 89 kg

DRUGS (2)
  1. LEVAQUIN [Suspect]
     Dosage: 500 THEN 250MG QD
  2. LANTUS [Suspect]
     Dosage: 30 UNITS

REACTIONS (1)
  - BLOOD GLUCOSE DECREASED [None]
